FAERS Safety Report 4543167-7 (Version None)
Quarter: 2004Q4

REPORT INFORMATION
  Report Type: 
  Country: None (occurrence: None)
  Receive Date: 20041229
  Receipt Date: 20041220
  Transmission Date: 20050328
  Serious: Yes (Hospitalization)
  Sender: FDA-Public Use
  Company Number: 2004SE05754

PATIENT
  Age: 53 Year
  Sex: Female

DRUGS (4)
  1. PROVISACOR [Suspect]
     Indication: HYPERCHOLESTEROLAEMIA
     Dosage: 10 MG PO
     Route: 048
     Dates: start: 20040801, end: 20040923
  2. MUTABON [Concomitant]
  3. PROTIADENE [Concomitant]
  4. NATURAL AGENTS LAXATIVE (CASCARA, SENNA, FRANGULA) [Concomitant]

REACTIONS (2)
  - IATROGENIC INJURY [None]
  - IDIOPATHIC THROMBOCYTOPENIC PURPURA [None]
